FAERS Safety Report 7566269-X (Version None)
Quarter: 2011Q2

REPORT INFORMATION
  Report Type: 
  Country: None (occurrence: None)
  Receive Date: 20110616
  Receipt Date: 20110531
  Transmission Date: 20111010
  Serious: Yes (Death, Hospitalization)
  Sender: FDA-Public Use
  Company Number: 2011FR0140

PATIENT
  Age: 75 Year
  Sex: Female

DRUGS (5)
  1. METHOTREXATE [Suspect]
     Indication: RHEUMATOID ARTHRITIS
     Dosage: 1,4286 MG (10 MG,1 IN 1 WK) SUBCUTANEOUS
     Route: 058
     Dates: start: 20110309, end: 20110318
  2. ACETAMINOPHEN [Concomitant]
  3. LORAZEPAM [Concomitant]
  4. INEXIUM (ESOMEPRAZOL) [Concomitant]
  5. KINERET [Suspect]
     Indication: RHEUMATOID ARTHRITIS
     Dosage: 100 MG (100 MG,1 IN 1 D) SUBCUTANEOUS
     Route: 058
     Dates: start: 20110309, end: 20110318

REACTIONS (6)
  - PYREXIA [None]
  - ABDOMINAL PAIN [None]
  - PANCYTOPENIA [None]
  - APLASTIC ANAEMIA [None]
  - CLOSTRIDIAL INFECTION [None]
  - BONE MARROW FAILURE [None]
